FAERS Safety Report 17113579 (Version 1)
Quarter: 2019Q4

REPORT INFORMATION
  Report Type: Spontaneous
  Country: SE (occurrence: SE)
  Receive Date: 20191205
  Receipt Date: 20191205
  Transmission Date: 20200122
  Serious: Yes (Hospitalization)
  Sender: FDA-Public Use
  Company Number: SE-TEVA-2019-SE-1146351

PATIENT
  Sex: Female

DRUGS (4)
  1. OXASCAND [Suspect]
     Active Substance: OXAZEPAM
     Dosage: OK QUANTITIES
     Route: 048
     Dates: start: 20180531, end: 20180531
  2. LERGIGAN (PROMETHAZINE HYDROCHLORIDE) [Suspect]
     Active Substance: PROMETHAZINE HYDROCHLORIDE
     Dosage: 15-20 ST
     Route: 048
     Dates: start: 20180531, end: 20180531
  3. THERALEN [Suspect]
     Active Substance: TRIMEPRAZINE
     Dosage: OK QUANTITIES
     Route: 048
     Dates: start: 20180531, end: 20180531
  4. STESOLID [Suspect]
     Active Substance: DIAZEPAM
     Dosage: OK QUANTITIES
     Route: 048
     Dates: start: 20180531, end: 20180531

REACTIONS (2)
  - Intentional self-injury [Unknown]
  - Intentional overdose [Unknown]

NARRATIVE: CASE EVENT DATE: 20180531
